FAERS Safety Report 8578066-7 (Version None)
Quarter: 2012Q3

REPORT INFORMATION
  Report Type: 
  Country: None (occurrence: None)
  Receive Date: 20120808
  Receipt Date: 20120803
  Transmission Date: 20120928
  Serious: Yes (Hospitalization, Other)
  Sender: FDA-Public Use
  Company Number: PHHY2012BR067920

PATIENT
  Sex: Female

DRUGS (2)
  1. DICLOFENAC SODIUM [Suspect]
     Dosage: UNK UKN, UNK
  2. RITALIN LA [Suspect]
     Dosage: 40 MG, UNK
     Route: 048

REACTIONS (3)
  - EMPHYSEMA [None]
  - OSTEOARTHRITIS [None]
  - BRONCHITIS [None]
